FAERS Safety Report 9684385 (Version 3)
Quarter: 2013Q4

REPORT INFORMATION
  Report Type: Spontaneous
  Country: FI (occurrence: FI)
  Receive Date: 20131112
  Receipt Date: 20131230
  Transmission Date: 20140711
  Serious: Yes (Hospitalization, Other)
  Sender: FDA-Public Use
  Company Number: FI-UCBSA-102753

PATIENT
  Age: 69 Year
  Sex: Male

DRUGS (11)
  1. CIMZIA [Suspect]
     Indication: SERONEGATIVE ARTHRITIS
     Route: 058
     Dates: start: 20100311, end: 2013
  2. PREDNISOLON [Concomitant]
  3. SOMAC [Concomitant]
     Dosage: 40MG
  4. KALCIPOS D [Concomitant]
  5. EMCONCOR [Concomitant]
  6. DUOIDART [Concomitant]
     Dosage: 0.5/0.4 MG
  7. DUOIDART [Concomitant]
     Dosage: 0.5/0.4 MG
  8. KETOMEX [Concomitant]
  9. TRAMAL RET [Concomitant]
  10. PANADOL [Concomitant]
     Dosage: 665 MG (1-3)
  11. PANACOD [Concomitant]

REACTIONS (3)
  - Atrioventricular block complete [Unknown]
  - Pulmonary embolism [Unknown]
  - Arthritis reactive [Unknown]
